FAERS Safety Report 6329181-X (Version None)
Quarter: 2009Q3

REPORT INFORMATION
  Report Type: 
  Country: None (occurrence: None)
  Receive Date: 20090825
  Receipt Date: 20090825
  Transmission Date: 20100115
  Serious: Yes (Hospitalization)
  Sender: FDA-Public Use
  Company Number: None

PATIENT
  Sex: Female
  Weight: 70.8 kg

DRUGS (1)
  1. MEMANTINE HYDROCHLORIDE [Suspect]

REACTIONS (6)
  - BACK PAIN [None]
  - DIABETES MELLITUS [None]
  - HEADACHE [None]
  - METASTATIC PAIN [None]
  - NAUSEA [None]
  - VOMITING [None]
